FAERS Safety Report 20382524 (Version 1)
Quarter: 2022Q1

REPORT INFORMATION
  Report Type: Spontaneous
  Country: CZ (occurrence: CZ)
  Receive Date: 20220127
  Receipt Date: 20220127
  Transmission Date: 20220423
  Serious: Yes (Other)
  Sender: FDA-Public Use
  Company Number: CZ-PFIZER INC-202200082027

PATIENT
  Sex: Male
  Weight: 89 kg

DRUGS (1)
  1. MEDROL [Suspect]
     Active Substance: METHYLPREDNISOLONE
     Dosage: UNK

REACTIONS (3)
  - Conjunctival disorder [Recovered/Resolved]
  - Foreign body sensation in eyes [Unknown]
  - Conjunctival oedema [Unknown]
